FAERS Safety Report 25457264 (Version 1)
Quarter: 2025Q2

REPORT INFORMATION
  Report Type: Report from Study
  Country: US (occurrence: US)
  Receive Date: 20250619
  Receipt Date: 20250619
  Transmission Date: 20250717
  Serious: Yes (Hospitalization)
  Sender: EISAI
  Company Number: US-Eisai-EC-2025-188962

PATIENT
  Age: 60 Year
  Sex: Female

DRUGS (4)
  1. LENVIMA [Suspect]
     Active Substance: LENVATINIB
     Indication: Brain neoplasm malignant
     Dates: start: 2025, end: 2025
  2. LENVIMA [Suspect]
     Active Substance: LENVATINIB
     Dates: start: 20250517, end: 2025
  3. LENVIMA [Suspect]
     Active Substance: LENVATINIB
     Dates: start: 2025, end: 2025
  4. LENVIMA [Suspect]
     Active Substance: LENVATINIB
     Dosage: START AT 4MG A DAY THEN GO UP TO 8MG DAILY
     Dates: start: 2025

REACTIONS (10)
  - Myalgia [Not Recovered/Not Resolved]
  - Headache [Unknown]
  - Fatigue [Unknown]
  - Decreased appetite [Unknown]
  - Muscular weakness [Unknown]
  - Blood pressure increased [Unknown]
  - Cough [Unknown]
  - Pyrexia [Unknown]
  - Blister [Unknown]
  - Vomiting [Unknown]

NARRATIVE: CASE EVENT DATE: 20250101
